FAERS Safety Report 4355047-0 (Version None)
Quarter: 2004Q2

REPORT INFORMATION
  Report Type: 
  Country: None (occurrence: None)
  Receive Date: 20040504
  Receipt Date: 20040422
  Transmission Date: 20050107
  Serious: Yes (Other)
  Sender: FDA-Public Use
  Company Number: 200412037BCC

PATIENT
  Age: 22 Year
  Sex: Female
  Weight: 63.5036 kg

DRUGS (1)
  1. MIDOL MENSTRUAL COMPLETE GELCAPS [Suspect]
     Indication: DYSMENORRHOEA
     Dosage: 4000 MG, TOTAL DAILY, ORAL
     Route: 048
     Dates: start: 20040421

REACTIONS (3)
  - ABDOMINAL PAIN LOWER [None]
  - ABDOMINAL PAIN UPPER [None]
  - KIDNEY INFECTION [None]
